FAERS Safety Report 8159130-3 (Version None)
Quarter: 2012Q1

REPORT INFORMATION
  Report Type: 
  Country: None (occurrence: None)
  Receive Date: 20120103
  Receipt Date: 20111101
  Transmission Date: 20120608
  Serious: No
  Sender: FDA-Public Use
  Company Number: AE-2011-002942

PATIENT
  Age: 33 Year
  Sex: Male
  Weight: 83.9154 kg

DRUGS (3)
  1. RIBAVIRIN [Concomitant]
  2. INCIVEK [Suspect]
     Dosage: 2250 MG (750 MG, 1 IN 8 HR), ORAL
     Route: 048
     Dates: start: 20111007
  3. PEGASYS [Concomitant]

REACTIONS (6)
  - PALPITATIONS [None]
  - CHILLS [None]
  - HAEMORRHOIDS [None]
  - DIZZINESS [None]
  - ANORECTAL DISCOMFORT [None]
  - FATIGUE [None]
